FAERS Safety Report 7675196-9 (Version None)
Quarter: 2011Q3

REPORT INFORMATION
  Report Type: 
  Country: None (occurrence: None)
  Receive Date: 20110810
  Receipt Date: 20110810
  Transmission Date: 20111222
  Serious: No
  Sender: FDA-Public Use
  Company Number: None

PATIENT
  Age: 64 Year
  Sex: Male
  Weight: 81.646 kg

DRUGS (1)
  1. SIMVASTATIN [Suspect]
     Indication: CORONARY ARTERY OCCLUSION
     Dosage: 20 MG
     Dates: start: 20100707, end: 20110503

REACTIONS (2)
  - MUSCLE INJURY [None]
  - MYALGIA [None]
